FAERS Safety Report 16464920 (Version 1)
Quarter: 2019Q2

REPORT INFORMATION
  Report Type: Report from Study
  Country: CO (occurrence: CO)
  Receive Date: 20190621
  Receipt Date: 20190621
  Transmission Date: 20190711
  Serious: Yes (Death, Other)
  Sender: FDA-Public Use
  Company Number: CO-UCBSA-2019025131

PATIENT
  Age: 81 Year
  Sex: Male
  Weight: 60 kg

DRUGS (1)
  1. CERTOLIZUMAB PEGOL [Suspect]
     Active Substance: CERTOLIZUMAB PEGOL
     Indication: RHEUMATOID ARTHRITIS
     Dosage: 400 MILLIGRAM, MONTHLY (QM)
     Route: 058
     Dates: start: 20170225, end: 20190507

REACTIONS (3)
  - Dehydration [Unknown]
  - Respiratory arrest [Fatal]
  - Vomiting [Unknown]

NARRATIVE: CASE EVENT DATE: 20190514
